FAERS Safety Report 9779770 (Version 2)
Quarter: 2013Q4

REPORT INFORMATION
  Report Type: Spontaneous
  Country: JP (occurrence: JP)
  Receive Date: 20131223
  Receipt Date: 20131223
  Transmission Date: 20140711
  Serious: Yes (Hospitalization)
  Sender: FDA-Public Use
  Company Number: JP-GLAXOSMITHKLINE-B0702425A

PATIENT
  Age: 27 Year
  Sex: Male

DRUGS (4)
  1. PAXIL [Suspect]
     Indication: DEPRESSION
     Dosage: 20MG PER DAY
     Route: 048
     Dates: start: 20101224, end: 20110128
  2. SEROQUEL [Suspect]
     Indication: SLEEP DISORDER
     Dosage: 25MG PER DAY
     Route: 048
     Dates: start: 20110107, end: 20110121
  3. DEPAS [Suspect]
     Indication: ANXIETY
     Dosage: 225MG PER DAY
     Route: 048
     Dates: start: 20100124, end: 20110129
  4. DESYREL [Suspect]
     Indication: SLEEP DISORDER
     Dosage: 50MG PER DAY
     Route: 048
     Dates: start: 20100224, end: 20110125

REACTIONS (9)
  - Rhabdomyolysis [Recovered/Resolved]
  - Grand mal convulsion [Recovered/Resolved]
  - Fall [Recovering/Resolving]
  - Dizziness [Recovering/Resolving]
  - Ill-defined disorder [Recovering/Resolving]
  - Loss of consciousness [Recovering/Resolving]
  - Myalgia [Recovering/Resolving]
  - Blood creatine phosphokinase increased [Recovering/Resolving]
  - Pyrexia [Unknown]
